FAERS Safety Report 8977286 (Version 1)
Quarter: 2012Q4

REPORT INFORMATION
  Report Type: 
  Country: DE (occurrence: DE)
  Receive Date: 20121220
  Receipt Date: 20121220
  Transmission Date: 20130627
  Serious: Yes (Other)
  Sender: FDA-Public Use
  Company Number: DE-ELI_LILLY_AND_COMPANY-DE201212003939

PATIENT
  Sex: Female

DRUGS (9)
  1. FORSTEO [Suspect]
     Indication: OSTEOPOROSIS
     Dosage: UNK, qd
     Route: 058
     Dates: start: 20120629, end: 201210
  2. FORSTEO [Suspect]
     Dosage: UNK, qd
     Route: 058
  3. DECORTIN [Concomitant]
     Dosage: 5 mg, UNK
  4. METOPROLOL [Concomitant]
  5. SALBUTAMOL [Concomitant]
  6. ESTRADIOL [Concomitant]
     Dosage: UNK, qd
  7. ESTRADIOL [Concomitant]
     Dosage: UNK, qod
  8. ESTRADIOL [Concomitant]
     Dosage: UNK, qd
  9. ESTRIOL W/TESTOSTERONE [Concomitant]
     Dosage: UNK, qod

REACTIONS (6)
  - Cerebrovascular accident [Not Recovered/Not Resolved]
  - Listless [Not Recovered/Not Resolved]
  - Gait disturbance [Unknown]
  - Headache [Not Recovered/Not Resolved]
  - Nausea [Not Recovered/Not Resolved]
  - Inappropriate schedule of drug administration [Unknown]
